FAERS Safety Report 20759942 (Version 2)
Quarter: 2022Q4

REPORT INFORMATION
  Report Type: Report from Study
  Country: US (occurrence: US)
  Receive Date: 20220427
  Receipt Date: 20221003
  Transmission Date: 20230113
  Serious: Yes (Hospitalization)
  Sender: FDA-Public Use
  Company Number: US-ABBVIE-22K-163-4372241-00

PATIENT
  Age: 62 Year
  Sex: Male

DRUGS (4)
  1. HUMIRA [Suspect]
     Active Substance: ADALIMUMAB
     Indication: Crohn^s disease
     Route: 058
  2. MODERNA COVID-19 VACCINE [Suspect]
     Active Substance: ELASOMERAN
     Indication: COVID-19 immunisation
     Dosage: FIRST DOSE/ONE IN ONE DAY.
     Route: 030
     Dates: start: 20210415, end: 20210415
  3. MODERNA COVID-19 VACCINE [Suspect]
     Active Substance: ELASOMERAN
     Indication: COVID-19 immunisation
     Dosage: TIME INTERVAL: 1 TOTAL: SECOND DOSE/ONE IN ONE DAY
     Route: 030
     Dates: start: 20210515, end: 20210515
  4. MODERNA COVID-19 VACCINE [Suspect]
     Active Substance: ELASOMERAN
     Indication: COVID-19 immunisation
     Dosage: TIME INTERVAL: 1 TOTAL: BOOSTER DOSE/ONE IN ONE DAY.
     Route: 030
     Dates: start: 20211215, end: 20211215

REACTIONS (6)
  - Nerve compression [Recovering/Resolving]
  - Herpes zoster [Recovering/Resolving]
  - Pain [Recovering/Resolving]
  - Sleep apnoea syndrome [Not Recovered/Not Resolved]
  - Illness [Recovered/Resolved]
  - Mobility decreased [Unknown]

NARRATIVE: CASE EVENT DATE: 20211201
